FAERS Safety Report 9323367 (Version 1)
Quarter: 2013Q2

REPORT INFORMATION
  Report Type: Spontaneous
  Country: FR (occurrence: FR)
  Receive Date: 20130603
  Receipt Date: 20130603
  Transmission Date: 20140414
  Serious: Yes (Hospitalization)
  Sender: FDA-Public Use
  Company Number: FR-009507513-1305FRA015057

PATIENT
  Age: 28 Year
  Sex: Female

DRUGS (3)
  1. CELESTENE 8MG/2ML [Suspect]
     Dosage: 12 MG, QD
     Route: 042
     Dates: start: 20130412, end: 20130413
  2. ALDOMET (METHYLDOPA) [Suspect]
     Dosage: 500 MG, BID
     Route: 048
     Dates: start: 20130412
  3. ALDOMET (METHYLDOPA) [Suspect]
     Dosage: 750 MG, BID
     Route: 048

REACTIONS (1)
  - Hepatitis [Recovering/Resolving]
